FAERS Safety Report 17636510 (Version 6)
Quarter: 2024Q4

REPORT INFORMATION
  Report Type: Report from Study
  Country: US (occurrence: US)
  Receive Date: 20200407
  Receipt Date: 20241228
  Transmission Date: 20250114
  Serious: Yes (Hospitalization, Other)
  Sender: ROCHE
  Company Number: US-ROCHE-2308445

PATIENT
  Age: 68 Year
  Sex: Male
  Weight: 95.25 kg

DRUGS (19)
  1. OCREVUS [Suspect]
     Active Substance: OCRELIZUMAB
     Indication: Relapsing multiple sclerosis
     Dosage: DOT:  26/AUG/2022, 09/JUN/2023 AND 15/DEC/2023.
     Route: 042
     Dates: start: 20180315
  2. COUMADIN [Concomitant]
     Active Substance: WARFARIN SODIUM
  3. ASPIRIN [Concomitant]
     Active Substance: ASPIRIN
  4. METOPROLOL [Concomitant]
     Active Substance: METOPROLOL
  5. CELEXA [Concomitant]
     Active Substance: CITALOPRAM HYDROBROMIDE
  6. CHONDROITIN SULFATE (BOVINE)\GLUCOSAMINE HYDROCHLORIDE [Concomitant]
     Active Substance: CHONDROITIN SULFATE (BOVINE)\GLUCOSAMINE HYDROCHLORIDE
  7. CALCIUM\CHOLECALCIFEROL\MAGNESIUM [Concomitant]
     Active Substance: CALCIUM\CHOLECALCIFEROL\MAGNESIUM
  8. SAW PALMETO [Concomitant]
  9. LYCOPENE [Concomitant]
     Active Substance: LYCOPENE
  10. LUTEIN [Concomitant]
     Active Substance: LUTEIN
  11. VITAMIN D3 [Concomitant]
     Active Substance: CHOLECALCIFEROL
  12. OMEGA 3 [Concomitant]
     Active Substance: CAPSAICIN
  13. BLACK CHERRY [Concomitant]
     Active Substance: BLACK CHERRY
  14. DIETARY SUPPLEMENT\HERBALS\MILK THISTLE [Concomitant]
     Active Substance: MILK THISTLE
  15. ODORLESS GARLIC [Concomitant]
  16. ZINC GLUCONATE [Concomitant]
     Active Substance: ZINC GLUCONATE
  17. PUMPKIN SEED OIL [Concomitant]
     Active Substance: PUMPKIN SEED OIL
  18. CINNAMON [Concomitant]
     Active Substance: CINNAMON
  19. HERBALS\TURMERIC [Concomitant]
     Active Substance: HERBALS\TURMERIC

REACTIONS (17)
  - Femur fracture [Recovered/Resolved]
  - Fall [Unknown]
  - Dizziness [Recovered/Resolved]
  - Humerus fracture [Recovered/Resolved]
  - Gait inability [Recovered/Resolved]
  - Osteoporosis [Not Recovered/Not Resolved]
  - Urinary tract infection [Recovered/Resolved]
  - Haemorrhage urinary tract [Recovered/Resolved]
  - Body height decreased [Not Recovered/Not Resolved]
  - Dysgraphia [Not Recovered/Not Resolved]
  - Optic neuritis [Not Recovered/Not Resolved]
  - Pain [Recovered/Resolved]
  - Pelvic fracture [Recovered/Resolved]
  - Limb discomfort [Recovered/Resolved]
  - Asthenia [Not Recovered/Not Resolved]
  - Femur fracture [Unknown]
  - Panic reaction [Unknown]

NARRATIVE: CASE EVENT DATE: 20190312
